FAERS Safety Report 5474936-7 (Version None)
Quarter: 2007Q4

REPORT INFORMATION
  Report Type: 
  Country: None (occurrence: None)
  Receive Date: 20071002
  Receipt Date: 20070924
  Transmission Date: 20080405
  Serious: Yes (Hospitalization, Other)
  Sender: FDA-Public Use
  Company Number: US-SHR-US-2007-014849

PATIENT
  Age: 59 Year
  Sex: Female
  Weight: 68.027 kg

DRUGS (4)
  1. BETASERON [Suspect]
     Indication: SECONDARY PROGRESSIVE MULTIPLE SCLEROSIS
     Dosage: 8 MIU, EVERY 2D
     Route: 058
     Dates: start: 20010719
  2. PROVIGIL [Concomitant]
  3. BACLOFEN [Concomitant]
  4. XANAX [Concomitant]
     Dosage: UNK, AS REQ'D

REACTIONS (4)
  - ABDOMINAL PAIN UPPER [None]
  - INJECTION SITE PAIN [None]
  - PANCREAS INFECTION [None]
  - WEIGHT DECREASED [None]
